FAERS Safety Report 4761898-0 (Version None)
Quarter: 2005Q3

REPORT INFORMATION
  Report Type: 
  Country: None (occurrence: None)
  Receive Date: 20050831
  Receipt Date: 20041029
  Transmission Date: 20060218
  Serious: Yes (Other)
  Sender: FDA-Public Use
  Company Number: 2004230075US

PATIENT
  Sex: Female

DRUGS (2)
  1. DETROL LA [Suspect]
     Indication: HYPERTONIC BLADDER
     Dosage: 4 MG, QD, ORAL
     Route: 048
     Dates: start: 20040801, end: 20040801
  2. VITAMINS [Concomitant]

REACTIONS (4)
  - DRUG INEFFECTIVE [None]
  - ERYTHEMA [None]
  - PAIN IN EXTREMITY [None]
  - SWELLING [None]
